FAERS Safety Report 5034789-8 (Version None)
Quarter: 2006Q2

REPORT INFORMATION
  Report Type: 
  Country: None (occurrence: None)
  Receive Date: 20060509
  Receipt Date: 20051220
  Transmission Date: 20061013
  Serious: Yes (Hospitalization, Other)
  Sender: FDA-Public Use
  Company Number: US200511001633

PATIENT
  Age: 19 Year
  Sex: Female

DRUGS (3)
  1. PROZAC [Suspect]
  2. AMITRIPTYLINE (AMITRIPTYLINE) [Concomitant]
  3. VICODIN [Concomitant]

REACTIONS (2)
  - OVERDOSE [None]
  - SUICIDE ATTEMPT [None]
